FAERS Safety Report 10548442 (Version 2)
Quarter: 2014Q4

REPORT INFORMATION
  Report Type: Report from Study
  Country: CA (occurrence: CA)
  Receive Date: 20141028
  Receipt Date: 20141028
  Transmission Date: 20150529
  Serious: Yes (Hospitalization, Other)
  Sender: FDA-Public Use
  Company Number: CA-AMGEN-CANSL2014075033

PATIENT
  Age: 86 Year
  Sex: Female
  Weight: 41.8 kg

DRUGS (7)
  1. TRAZODONE [Concomitant]
     Active Substance: TRAZODONE HYDROCHLORIDE
     Dosage: 50 MG,1/2 TABLET QHS PRN
     Route: 048
  2. PROLIA [Suspect]
     Active Substance: DENOSUMAB
     Indication: OSTEOPOROSIS POSTMENOPAUSAL
     Dosage: 60 MG, Q6MO
     Route: 058
     Dates: start: 20110107
  3. VITAMIN D                          /00107901/ [Concomitant]
     Active Substance: ERGOCALCIFEROL
     Dosage: 1000 UNK, QD
     Route: 048
  4. GLAUCINE [Concomitant]
     Dosage: DPS
  5. CALCIUM [Concomitant]
     Active Substance: CALCIUM
     Dosage: 500 UNK, BID DAILY
  6. VENTOLIN [Concomitant]
     Active Substance: ALBUTEROL SULFATE
     Dosage: UNK UNK, AS NECESSARY
  7. ASA [Concomitant]
     Active Substance: ASPIRIN
     Dosage: 81 MG, QD
     Route: 048

REACTIONS (13)
  - Pleural effusion [Unknown]
  - Vascular calcification [Unknown]
  - Pubis fracture [Unknown]
  - Femur fracture [Unknown]
  - Spinal osteoarthritis [Unknown]
  - Scoliosis [Unknown]
  - Osteoarthritis [Unknown]
  - Spinal compression fracture [Unknown]
  - Hip fracture [Recovered/Resolved]
  - Aortic arteriosclerosis [Unknown]
  - Atelectasis [Unknown]
  - Injury [Unknown]
  - Pelvic fracture [Recovered/Resolved]

NARRATIVE: CASE EVENT DATE: 201403
